FAERS Safety Report 11243258 (Version 5)
Quarter: 2015Q4

REPORT INFORMATION
  Report Type: Report from Study
  Country: US (occurrence: US)
  Receive Date: 20150707
  Receipt Date: 20151216
  Transmission Date: 20160304
  Serious: Yes (Hospitalization, Other)
  Sender: FDA-Public Use
  Company Number: US-GILEAD-2015-0162050

PATIENT
  Age: 46 Year
  Sex: Female
  Weight: 68 kg

DRUGS (9)
  1. REMODULIN [Suspect]
     Active Substance: TREPROSTINIL
     Indication: PULMONARY HYPERTENSION
     Dosage: 0.022 UG/KG, UNK
     Route: 041
     Dates: start: 201311
  2. REVATIO [Suspect]
     Active Substance: SILDENAFIL CITRATE
     Indication: PULMONARY HYPERTENSION
     Dosage: 60 MG, TID
     Route: 048
     Dates: start: 201010
  3. AMBRISENTAN [Suspect]
     Active Substance: AMBRISENTAN
     Indication: DRUG ABUSE
     Dosage: 10 MG, QD
     Route: 065
     Dates: start: 201103
  4. AMBRISENTAN [Suspect]
     Active Substance: AMBRISENTAN
     Dosage: 10 MG, QD
     Route: 065
     Dates: start: 20130404
  5. REMODULIN [Suspect]
     Active Substance: TREPROSTINIL
     Dosage: .092 UG/KG, UNK
     Route: 042
     Dates: start: 20140806
  6. AMBRISENTAN [Suspect]
     Active Substance: AMBRISENTAN
     Indication: PULMONARY HYPERTENSION
     Dosage: 10 MG, QD
     Route: 065
     Dates: start: 20110208
  7. AMBRISENTAN [Suspect]
     Active Substance: AMBRISENTAN
     Dosage: 5 MG, QD
     Route: 065
     Dates: start: 20110209
  8. REMODULIN [Suspect]
     Active Substance: TREPROSTINIL
     Dosage: .092 UG/KG, UNK
     Route: 041
  9. REMODULIN [Suspect]
     Active Substance: TREPROSTINIL
     Dosage: .022 UG/KG, UNK
     Route: 041

REACTIONS (3)
  - Pancreatitis [Unknown]
  - Renal failure [Not Recovered/Not Resolved]
  - Central venous catheterisation [Unknown]
